FAERS Safety Report 16534777 (Version 1)
Quarter: 2019Q3

REPORT INFORMATION
  Report Type: Spontaneous
  Country: NL (occurrence: FR)
  Receive Date: 20190705
  Receipt Date: 20190705
  Transmission Date: 20191004
  Serious: Yes (Hospitalization)
  Sender: FDA-Public Use
  Company Number: FR-FRESENIUS KABI-FK201907201

PATIENT
  Age: 50 Year
  Sex: Female
  Weight: 60 kg

DRUGS (12)
  1. CALCIUM FOLINATE [Suspect]
     Active Substance: LEUCOVORIN CALCIUM
     Indication: COLORECTAL CANCER METASTATIC
     Dosage: 328 MG, QCY
     Route: 042
     Dates: start: 20160407, end: 20160407
  2. FLUOROURACIL. [Suspect]
     Active Substance: FLUOROURACIL
     Dosage: 650 MG, QCY
     Dates: start: 20160324, end: 20160324
  3. AFLIBERCEPT [Suspect]
     Active Substance: AFLIBERCEPT
     Indication: PRODUCT USED FOR UNKNOWN INDICATION
     Dosage: 248 MG, QCY
     Route: 042
     Dates: start: 20160407, end: 20160407
  4. FLUOROURACIL. [Suspect]
     Active Substance: FLUOROURACIL
     Indication: COLORECTAL CANCER METASTATIC
     Dosage: 3950 MG, QCY
     Route: 042
     Dates: start: 20160407, end: 20160407
  5. INDAPAMIDE/PERINDOPRIL ARGININE [Concomitant]
     Indication: HYPERTENSION
     Dosage: 2.5 MG,UNK
     Route: 065
     Dates: start: 20160301
  6. IRINOTECAN (MANUFACTURER UNKNOWN) [Suspect]
     Active Substance: IRINOTECAN
     Indication: COLORECTAL CANCER METASTATIC
     Dosage: 300 MG, QCY
     Route: 042
     Dates: start: 20160121, end: 20160121
  7. IRINOTECAN (MANUFACTURER UNKNOWN) [Suspect]
     Active Substance: IRINOTECAN
     Dosage: 300 MG, QCY
     Dates: start: 20160407, end: 20160407
  8. AFLIBERCEPT [Suspect]
     Active Substance: AFLIBERCEPT
     Dosage: 248 UNK, QCY
     Dates: start: 20160121, end: 20160121
  9. FLUOROURACIL. [Suspect]
     Active Substance: FLUOROURACIL
     Dosage: 650 MG, QCY
     Dates: start: 20160121, end: 20160121
  10. NEBIVOLOL HYDROCHLORIDE [Concomitant]
     Active Substance: NEBIVOLOL HYDROCHLORIDE
     Indication: HYPERTENSION
     Dosage: 5 MG,UNK
     Route: 065
     Dates: start: 20160204
  11. CALCIUM FOLINATE [Suspect]
     Active Substance: LEUCOVORIN CALCIUM
     Dosage: 328 MG, QCY
     Dates: start: 20160121, end: 20160121
  12. FLUOROURACIL. [Suspect]
     Active Substance: FLUOROURACIL
     Dosage: 3950 MG, QCY
     Dates: start: 20160121, end: 20160121

REACTIONS (2)
  - Phlebitis [Unknown]
  - Pulmonary embolism [Unknown]

NARRATIVE: CASE EVENT DATE: 20160418
